FAERS Safety Report 14487447 (Version 3)
Quarter: 2018Q2

REPORT INFORMATION
  Report Type: Report from Study
  Country: US (occurrence: US)
  Receive Date: 20180205
  Receipt Date: 20180402
  Transmission Date: 20180711
  Serious: Yes (Death, Hospitalization, Other)
  Sender: FDA-Public Use
  Company Number: PHEH2018US004479

PATIENT
  Age: 86 Year
  Sex: Male
  Weight: 73.3 kg

DRUGS (36)
  1. LORAZEPAM. [Concomitant]
     Active Substance: LORAZEPAM
     Indication: NAUSEA
  2. NITROGLYCERIN. [Concomitant]
     Active Substance: NITROGLYCERIN
     Indication: ANGINA PECTORIS
     Dosage: 0.4 MG, DAILY/ PRN
     Route: 060
     Dates: start: 20170710
  3. TAMSULOSIN [Concomitant]
     Active Substance: TAMSULOSIN
     Indication: BENIGN PROSTATIC HYPERPLASIA
     Dosage: 0.4 MG, QHS
     Route: 048
     Dates: start: 20170710
  4. NYSTATIN. [Concomitant]
     Active Substance: NYSTATIN
     Indication: DYSPNOEA
     Dosage: APPLY 100000 U/G TO GROIN AREA, 4 TIME DAILY
     Route: 061
  5. ATROPINE. [Concomitant]
     Active Substance: ATROPINE
     Indication: PRODUCT USED FOR UNKNOWN INDICATION
     Dosage: 2 DRP, Q2H AS NEEDED
     Route: 047
  6. OXYGEN. [Concomitant]
     Active Substance: OXYGEN
     Dosage: 5 L, DAILY/ PRN
     Route: 065
  7. IPRATROPIUM [Concomitant]
     Active Substance: IPRATROPIUM
     Indication: DYSPNOEA
  8. MORPHINE [Concomitant]
     Active Substance: MORPHINE
     Indication: DYSPNOEA
     Dosage: 2 MG, UNK
     Route: 058
     Dates: start: 20170710
  9. PROCHLORPERAZINE. [Concomitant]
     Active Substance: PROCHLORPERAZINE
     Indication: VOMITING
  10. ACETAMINOPHEN. [Concomitant]
     Active Substance: ACETAMINOPHEN
     Indication: PYREXIA
     Dosage: 650 MG, Q8H AS NEEDED
     Route: 054
     Dates: start: 20170710
  11. OXYGEN. [Concomitant]
     Active Substance: OXYGEN
     Indication: DYSPNOEA
     Dosage: 2 L, DAILY/ PRN
     Route: 065
     Dates: start: 20170710
  12. FUROSEMIDE. [Concomitant]
     Active Substance: FUROSEMIDE
     Dosage: 1 DF, QD (IF GAINED WEIGHT 2LB PER DAY) FOR 3 DAYS AND THEN RETURNS TO ORIGINAL)
     Route: 048
  13. METOPROLOL TARTRATE. [Concomitant]
     Active Substance: METOPROLOL TARTRATE
     Indication: HYPERTENSION
     Dosage: 0.5 DF, BID
     Route: 048
     Dates: start: 20170710
  14. NITROGLYCERIN. [Concomitant]
     Active Substance: NITROGLYCERIN
     Indication: DYSPNOEA
  15. OMEPRAZOLE. [Concomitant]
     Active Substance: OMEPRAZOLE
     Indication: GASTROOESOPHAGEAL REFLUX DISEASE
     Dosage: 20 MG, QD
     Route: 048
     Dates: start: 20170710
  16. PROCHLORPERAZINE. [Concomitant]
     Active Substance: PROCHLORPERAZINE
     Indication: NAUSEA
     Dosage: 25 MG, Q12H/ PRN
     Route: 054
     Dates: start: 20170710
  17. NYSTATIN. [Concomitant]
     Active Substance: NYSTATIN
     Indication: FUNGAL INFECTION
  18. MORPHINE [Concomitant]
     Active Substance: MORPHINE
     Indication: PAIN
     Dosage: 0.25 ML (5 MG), HOURLY/ PRN
     Route: 048
     Dates: start: 20170710
  19. ENTRESTO [Suspect]
     Active Substance: SACUBITRIL\VALSARTAN
     Dosage: 1 DF (24MG SACUBITRIL/ 26MG VALSARTAN), BID
     Route: 048
     Dates: start: 20170530
  20. ACETAMINOPHEN. [Concomitant]
     Active Substance: ACETAMINOPHEN
     Indication: PAIN
  21. FUROSEMIDE. [Concomitant]
     Active Substance: FUROSEMIDE
     Indication: DYSPNOEA
     Dosage: 0.5 DF, QD (EXCEPT ON MONDAY)
     Route: 048
     Dates: start: 20170710
  22. ALBUTEROL. [Concomitant]
     Active Substance: ALBUTEROL
     Indication: DYSPNOEA
  23. LORAZEPAM. [Concomitant]
     Active Substance: LORAZEPAM
     Indication: INSOMNIA
  24. ENTRESTO [Suspect]
     Active Substance: SACUBITRIL\VALSARTAN
     Dosage: 1 DF (49MG SACUBITRIL/ 51MG VALSARTAN), BID
     Route: 048
     Dates: start: 20170524
  25. OXYGEN. [Concomitant]
     Active Substance: OXYGEN
     Dosage: 4 L, DAILY/ PRN
     Route: 065
  26. LORAZEPAM. [Concomitant]
     Active Substance: LORAZEPAM
     Indication: ANXIETY
     Dosage: 1 MG TABLET, HOURLY/PRN
     Route: 048
     Dates: start: 20170710
  27. COUMADIN [Concomitant]
     Active Substance: WARFARIN SODIUM
     Indication: ANTICOAGULANT THERAPY
     Dosage: UNK
     Route: 065
     Dates: start: 20160201
  28. ENTRESTO [Suspect]
     Active Substance: SACUBITRIL\VALSARTAN
     Indication: PRODUCT USED FOR UNKNOWN INDICATION
     Dosage: 1 DF (24MG SACUBITRIL/ 26MG VALSARTAN), BID
     Route: 048
     Dates: start: 20161117
  29. OXYGEN. [Concomitant]
     Active Substance: OXYGEN
     Dosage: 8 L, DAILY/ PRN
     Route: 065
  30. CARBIDOPA LEVODOPA [Concomitant]
     Active Substance: CARBIDOPA\LEVODOPA
     Indication: PARKINSON^S DISEASE
     Dosage: 2 DF (25MG/100MG), TID
     Route: 048
     Dates: start: 20170710
  31. HALOPERIDOL. [Concomitant]
     Active Substance: HALOPERIDOL
     Indication: NAUSEA
     Dosage: 1/2 TO1 TABLET, EVERY 8-12 HRS AS NEEDED
     Route: 048
     Dates: start: 20170710
  32. HALOPERIDOL. [Concomitant]
     Active Substance: HALOPERIDOL
     Indication: DELIRIUM
  33. IPRATROPIUM [Concomitant]
     Active Substance: IPRATROPIUM
     Indication: CARDIAC FAILURE
     Dosage: 0.5 MG, TID
     Route: 055
     Dates: start: 20170710
  34. ALBUTEROL. [Concomitant]
     Active Substance: ALBUTEROL
     Indication: CARDIAC FAILURE
     Dosage: 3 MG, TID
     Route: 055
     Dates: start: 20170710
  35. OXYGEN. [Concomitant]
     Active Substance: OXYGEN
     Dosage: 10 L, DAILY/ PRN
     Route: 065
  36. LORAZEPAM. [Concomitant]
     Active Substance: LORAZEPAM
     Indication: RESTLESSNESS

REACTIONS (42)
  - Ischaemic cardiomyopathy [Fatal]
  - Pulmonary congestion [Unknown]
  - Lymphocyte count decreased [Unknown]
  - Blood sodium increased [Unknown]
  - Haemoglobin decreased [Unknown]
  - Dyspnoea exertional [Unknown]
  - Exercise tolerance decreased [Unknown]
  - Weight increased [Unknown]
  - Blood calcium decreased [Unknown]
  - Fatigue [Unknown]
  - Decubitus ulcer [Unknown]
  - Skin abrasion [Unknown]
  - Insomnia [Unknown]
  - Blood chloride increased [Unknown]
  - Blood potassium increased [Unknown]
  - Rhonchi [Unknown]
  - Generalised oedema [Unknown]
  - Dysarthria [Unknown]
  - Moaning [Unknown]
  - Platelet count decreased [Unknown]
  - Carbon dioxide decreased [Unknown]
  - Red blood cell count decreased [Unknown]
  - Blood pressure decreased [Unknown]
  - Fall [Unknown]
  - Blood urea increased [Unknown]
  - Blood creatinine increased [Unknown]
  - Arteriosclerosis coronary artery [Fatal]
  - Anal incontinence [Unknown]
  - Chest pain [Unknown]
  - Somnolence [Unknown]
  - Respiratory rate decreased [Unknown]
  - Haematocrit decreased [Unknown]
  - Hypoacusis [Unknown]
  - Blood glucose increased [Unknown]
  - Oxygen saturation decreased [Unknown]
  - Glomerular filtration rate decreased [Unknown]
  - Dizziness [Unknown]
  - Chronic left ventricular failure [Fatal]
  - Pulmonary amyloidosis [Unknown]
  - Pneumonia [Unknown]
  - Oedema peripheral [Unknown]
  - Body temperature decreased [Unknown]

NARRATIVE: CASE EVENT DATE: 20161203
